FAERS Safety Report 5826045-2 (Version None)
Quarter: 2008Q3

REPORT INFORMATION
  Report Type: 
  Country: None (occurrence: None)
  Receive Date: 20080729
  Receipt Date: 20080725
  Transmission Date: 20090109
  Serious: Yes (Other)
  Sender: FDA-Public Use
  Company Number: JP-JNJFOC-20080600323

PATIENT
  Sex: Male
  Weight: 48 kg

DRUGS (5)
  1. ITRIZOLE [Suspect]
     Indication: LYMPHOMA
     Route: 048
  2. STOGAR [Concomitant]
     Indication: LYMPHOMA
     Route: 048
  3. GRAMALIL [Concomitant]
     Indication: LYMPHOMA
     Route: 048
  4. LENDORMIN [Concomitant]
     Indication: LYMPHOMA
     Route: 048
  5. CYANOCOBALAMIN [Concomitant]
     Indication: LYMPHOMA
     Route: 048

REACTIONS (2)
  - B-LYMPHOCYTE ABNORMALITIES [None]
  - NEUTROPHIL COUNT DECREASED [None]
